FAERS Safety Report 12322562 (Version 1)
Quarter: 2016Q2

REPORT INFORMATION
  Report Type: Report from Study
  Country: US (occurrence: US)
  Receive Date: 20160502
  Receipt Date: 20160502
  Transmission Date: 20160815
  Serious: Yes (Other)
  Sender: FDA-Public Use
  Company Number: US-ROCHE-1744577

PATIENT
  Age: 58 Year
  Sex: Female
  Weight: 80.81 kg

DRUGS (11)
  1. HERCEPTIN [Suspect]
     Active Substance: TRASTUZUMAB
     Dosage: NO
     Route: 042
     Dates: start: 2014, end: 201502
  2. NEULASTA [Concomitant]
     Active Substance: PEGFILGRASTIM
     Dosage: NO
     Route: 058
     Dates: start: 201506, end: 201510
  3. PERJETA [Suspect]
     Active Substance: PERTUZUMAB
     Indication: BREAST CANCER
     Route: 042
     Dates: start: 20140501
  4. PERJETA [Suspect]
     Active Substance: PERTUZUMAB
     Dosage: NO
     Route: 042
     Dates: start: 2014, end: 201502
  5. NEULASTA [Concomitant]
     Active Substance: PEGFILGRASTIM
     Dosage: ONE INJECTION
     Route: 058
     Dates: start: 20160310
  6. HERCEPTIN [Suspect]
     Active Substance: TRASTUZUMAB
     Dosage: NO
     Route: 042
     Dates: start: 2012, end: 2013
  7. TAXOL [Suspect]
     Active Substance: PACLITAXEL
     Indication: BREAST CANCER
     Dosage: NO
     Route: 042
     Dates: start: 2014, end: 2014
  8. ABRAXANE [Concomitant]
     Active Substance: PACLITAXEL
     Indication: BREAST CANCER
     Route: 042
     Dates: start: 20150501, end: 201510
  9. HERCEPTIN [Suspect]
     Active Substance: TRASTUZUMAB
     Indication: BREAST CANCER
     Dosage: YES
     Route: 042
     Dates: start: 20150501
  10. TAXOL [Suspect]
     Active Substance: PACLITAXEL
     Dosage: NO
     Route: 042
     Dates: start: 2012, end: 2012
  11. CARBOPLATIN. [Concomitant]
     Active Substance: CARBOPLATIN
     Indication: BREAST CANCER
     Dosage: NO
     Route: 042
     Dates: start: 2012, end: 2012

REACTIONS (12)
  - Metastasis [Recovered/Resolved]
  - Dyspnoea [Recovered/Resolved]
  - Fatigue [Unknown]
  - Recurrent cancer [Not Recovered/Not Resolved]
  - Infusion related reaction [Recovered/Resolved]
  - Metastases to bone [Recovered/Resolved]
  - White blood cell count decreased [Not Recovered/Not Resolved]
  - Confusional state [Unknown]
  - Metastases to lymph nodes [Recovered/Resolved]
  - Cerebrovascular accident [Unknown]
  - Metastases to bone [Not Recovered/Not Resolved]
  - Metastases to central nervous system [Not Recovered/Not Resolved]

NARRATIVE: CASE EVENT DATE: 2012
